FAERS Safety Report 15200126 (Version 2)
Quarter: 2018Q4

REPORT INFORMATION
  Report Type: Report from Study
  Country: BR (occurrence: BR)
  Receive Date: 20180726
  Receipt Date: 20181205
  Transmission Date: 20190204
  Serious: Yes (Hospitalization)
  Sender: FDA-Public Use
  Company Number: BR-UCBSA-2018032821

PATIENT
  Age: 46 Year
  Sex: Male
  Weight: 75 kg

DRUGS (2)
  1. LEVETIRACETAM. [Suspect]
     Active Substance: LEVETIRACETAM
     Indication: EPILEPSY
     Dosage: 750 MG, 2X/DAY (BID)
     Route: 048
     Dates: start: 201802, end: 201806
  2. LEVETIRACETAM. [Suspect]
     Active Substance: LEVETIRACETAM
     Dosage: 750 MG 2 TAB IN MORNING, 1 TAB IN AFTERNOON AND 2 TAB IN EVENING, 3X/DAY (TID)
     Route: 048
     Dates: start: 201810

REACTIONS (6)
  - Seizure [Not Recovered/Not Resolved]
  - Overdose [Unknown]
  - Confusional state [Recovering/Resolving]
  - Drug ineffective [Unknown]
  - Movement disorder [Recovering/Resolving]
  - Off label use [Unknown]

NARRATIVE: CASE EVENT DATE: 20180712
